FAERS Safety Report 18993307 (Version 3)
Quarter: 2024Q2

REPORT INFORMATION
  Report Type: Spontaneous
  Country: US (occurrence: US)
  Receive Date: 20210310
  Receipt Date: 20240620
  Transmission Date: 20240715
  Serious: No
  Sender: FDA-Public Use
  Company Number: US-SANOFI-00506150

PATIENT
  Sex: Female

DRUGS (4)
  1. DUPIXENT [Suspect]
     Active Substance: DUPILUMAB
     Indication: Psoriasis
     Dosage: 300 MG, QOW
     Route: 058
  2. DUPIXENT [Suspect]
     Active Substance: DUPILUMAB
     Indication: Pruritus
  3. DUPIXENT [Suspect]
     Active Substance: DUPILUMAB
     Indication: Urticaria
  4. DUPIXENT [Suspect]
     Active Substance: DUPILUMAB
     Indication: Idiopathic urticaria

REACTIONS (4)
  - Blister [Unknown]
  - Urticaria [Unknown]
  - Product use in unapproved indication [Unknown]
  - Product dose omission issue [Unknown]
